FAERS Safety Report 25855637 (Version 1)
Quarter: 2025Q3

REPORT INFORMATION
  Report Type: Spontaneous
  Country: US (occurrence: US)
  Receive Date: 20250927
  Receipt Date: 20250927
  Transmission Date: 20251021
  Serious: No
  Sender: SANOFI AVENTIS
  Company Number: US-SA-2025SA287734

PATIENT
  Age: 62 Year
  Sex: Female

DRUGS (4)
  1. DUPIXENT [Suspect]
     Active Substance: DUPILUMAB
     Indication: Dermatitis atopic
     Dosage: 300 MG, QOW
     Route: 058
     Dates: start: 202201
  2. DUPIXENT [Suspect]
     Active Substance: DUPILUMAB
     Indication: Asthma
  3. DUPIXENT [Suspect]
     Active Substance: DUPILUMAB
     Indication: Crohn^s disease
  4. TREMFYA [Concomitant]
     Active Substance: GUSELKUMAB

REACTIONS (5)
  - Abdominal pain [Unknown]
  - Abdominal discomfort [Unknown]
  - Diarrhoea [Unknown]
  - Viral infection [Unknown]
  - Product use in unapproved indication [Unknown]

NARRATIVE: CASE EVENT DATE: 20220101
